FAERS Safety Report 9122507 (Version 2)
Quarter: 2013Q2

REPORT INFORMATION
  Report Type: Report from Study
  Country: AU (occurrence: AU)
  Receive Date: 20130227
  Receipt Date: 20130417
  Transmission Date: 20140414
  Serious: Yes (Hospitalization)
  Sender: FDA-Public Use
  Company Number: PHHY2013AU019033

PATIENT
  Age: 63 Year
  Sex: Male

DRUGS (6)
  1. CLOZARIL [Suspect]
     Dosage: 350 MG, UNK
     Route: 048
     Dates: start: 19960822
  2. VALPROIC ACID [Suspect]
     Dosage: 500 MG, BID
     Route: 048
  3. ATORVASTATIN [Concomitant]
     Dosage: 40 MG, DAILY
     Route: 048
  4. ESCITALOPRAM [Concomitant]
     Dosage: 10 MG, DAILY
     Route: 048
  5. CHOLECALCIFEROL [Concomitant]
     Dosage: 25 UG, DAILY
     Route: 048
  6. DOCUSATE W/SENNA [Concomitant]
     Dosage: 1 DF, BID
     Route: 048

REACTIONS (3)
  - Mobility decreased [Recovering/Resolving]
  - Toxicity to various agents [Recovering/Resolving]
  - Sedation [Recovering/Resolving]
